FAERS Safety Report 21721468 (Version 1)
Quarter: 2022Q4

REPORT INFORMATION
  Report Type: Spontaneous
  Country: US (occurrence: None)
  Receive Date: 20221212
  Receipt Date: 20221212
  Transmission Date: 20230113
  Serious: No
  Sender: FDA-Public Use
  Company Number: None

PATIENT
  Age: 65 Year
  Sex: Male
  Weight: 140.61 kg

DRUGS (1)
  1. COSENTYX [Suspect]
     Active Substance: SECUKINUMAB
     Indication: Rheumatoid arthritis
     Dosage: OTHER QUANTITY : 300MG (2PK);?FREQUENCY : AS DIRECTED;?
     Route: 058
     Dates: start: 202201

REACTIONS (2)
  - Localised infection [None]
  - Localised infection [None]
